FAERS Safety Report 8044548-X (Version None)
Quarter: 2012Q1

REPORT INFORMATION
  Report Type: 
  Country: None (occurrence: None)
  Receive Date: 20120113
  Receipt Date: 20120110
  Transmission Date: 20120608
  Serious: Yes (Death, Life-Threatening, Hospitalization, Disabling)
  Sender: FDA-Public Use
  Company Number: NL-JNJFOC-20111008448

PATIENT
  Sex: Female
  Weight: 53 kg

DRUGS (15)
  1. PALIPERIDONE [Suspect]
     Dosage: MAINTAINANCE DOSE
     Route: 030
     Dates: end: 20111019
  2. RISPERIDONE [Concomitant]
     Route: 065
  3. SCOPODERM [Concomitant]
     Route: 065
  4. PALIPERIDONE [Suspect]
     Indication: PRODUCT USED FOR UNKNOWN INDICATION
     Dosage: DAY 1
     Route: 030
  5. ALL OTHER THERAPEUTIC PRODUCT [Suspect]
     Indication: PRODUCT USED FOR UNKNOWN INDICATION
     Route: 065
  6. PALIPERIDONE [Suspect]
     Dosage: DAY 8
     Route: 030
  7. MORPHINE [Suspect]
     Indication: PRODUCT USED FOR UNKNOWN INDICATION
     Route: 065
  8. FRAXIPARINE [Concomitant]
     Route: 065
  9. LANTUS [Concomitant]
     Route: 065
  10. ACETAMINOPHEN [Concomitant]
     Route: 065
  11. NEXIUM [Concomitant]
     Route: 065
  12. UNKNOWN MEDICATION [Concomitant]
     Route: 065
  13. LACTULOSE [Concomitant]
     Route: 065
  14. OXAZEPAM [Concomitant]
     Route: 065
  15. MOTILIUM [Concomitant]
     Dosage: 3 DD 10
     Route: 065

REACTIONS (5)
  - DEATH [None]
  - LOCKED-IN SYNDROME [None]
  - COMA [None]
  - CEREBRAL INFARCTION [None]
  - MULTIPLE DRUG OVERDOSE [None]
